FAERS Safety Report 24632699 (Version 1)
Quarter: 2024Q4

REPORT INFORMATION
  Report Type: Spontaneous
  Country: US (occurrence: US)
  Receive Date: 20241118
  Receipt Date: 20241118
  Transmission Date: 20250115
  Serious: No
  Sender: PERRIGO
  Company Number: US-PERRIGO-24US004945

PATIENT
  Age: 25 Year
  Sex: Female
  Weight: 117.91 kg

DRUGS (2)
  1. OPILL [Suspect]
     Active Substance: NORGESTREL
     Indication: Oral contraception
     Dosage: 0.075 MG, QD
     Route: 048
     Dates: start: 20240407
  2. PAMPRIN [Concomitant]
     Active Substance: IBUPROFEN
     Indication: Dysmenorrhoea
     Dosage: UNKNOWN, PRN
     Route: 048

REACTIONS (4)
  - Blood iron decreased [Not Recovered/Not Resolved]
  - Heavy menstrual bleeding [Not Recovered/Not Resolved]
  - Oligomenorrhoea [Not Recovered/Not Resolved]
  - Intermenstrual bleeding [Recovered/Resolved]

NARRATIVE: CASE EVENT DATE: 20240401
